FAERS Safety Report 18721338 (Version 1)
Quarter: 2021Q1

REPORT INFORMATION
  Report Type: Spontaneous
  Country: US (occurrence: US)
  Receive Date: 20210109
  Receipt Date: 20210109
  Transmission Date: 20210419
  Serious: No
  Sender: FDA-Public Use
  Company Number: US-TEVA-2021-US-1866811

PATIENT
  Age: 31 Year
  Sex: Female

DRUGS (1)
  1. AMOXICILLIN TEVA [Suspect]
     Active Substance: AMOXICILLIN
     Route: 065

REACTIONS (3)
  - Erythema [Unknown]
  - Blister [Unknown]
  - Skin exfoliation [Unknown]
